FAERS Safety Report 7378353-4 (Version None)
Quarter: 2011Q1

REPORT INFORMATION
  Report Type: 
  Country: None (occurrence: None)
  Receive Date: 20110328
  Receipt Date: 20110318
  Transmission Date: 20110831
  Serious: Yes (Other)
  Sender: FDA-Public Use
  Company Number: US-ELI_LILLY_AND_COMPANY-US201102000276

PATIENT
  Sex: Female

DRUGS (5)
  1. THYROXINE [Concomitant]
     Dosage: 12.5 MG, UNK
  2. CYMBALTA [Suspect]
     Indication: NEURALGIA
     Dosage: 20 MG, DAILY (1/D)
     Dates: start: 20101216
  3. CYMBALTA [Suspect]
     Dosage: 20 MG, QOD
     Dates: end: 20110127
  4. CYMBALTA [Suspect]
     Dosage: 20 MG, DAILY (1/D)
     Dates: start: 20101228, end: 20110123
  5. CYMBALTA [Suspect]
     Dosage: 20 MG, 2/D
     Dates: start: 20101223, end: 20101228

REACTIONS (7)
  - LOSS OF CONSCIOUSNESS [None]
  - FATIGUE [None]
  - FALL [None]
  - OFF LABEL USE [None]
  - DIZZINESS [None]
  - FEELING ABNORMAL [None]
  - HYPOTHYROIDISM [None]
